FAERS Safety Report 5711897-7 (Version None)
Quarter: 2008Q2

REPORT INFORMATION
  Report Type: 
  Country: None (occurrence: None)
  Receive Date: 20080421
  Receipt Date: 20080410
  Transmission Date: 20081010
  Serious: Yes (Other)
  Sender: FDA-Public Use
  Company Number: JP-PFIZER INC-2008032486

PATIENT
  Age: 49 Year
  Sex: Male

DRUGS (5)
  1. EPLERENONE [Suspect]
     Indication: HYPERTENSION
     Dosage: DAILY DOSE:50MG
     Route: 048
     Dates: start: 20080323, end: 20080329
  2. LOSARTAN POTASSIUM AND HYDROCHLOROTHIAZIDE [Suspect]
     Indication: HYPERTENSION
     Dosage: TEXT:1 DOSE FORM
     Route: 048
     Dates: start: 20080331, end: 20080407
  3. NITRENDIPINE [Concomitant]
     Route: 048
  4. ALLOPURINOL [Concomitant]
     Route: 048
  5. AZELASTINE HCL [Concomitant]
     Route: 048

REACTIONS (1)
  - DRUG ERUPTION [None]
